FAERS Safety Report 8859503 (Version 1)
Quarter: 2012Q4

REPORT INFORMATION
  Report Type: 
  Country: FR (occurrence: FR)
  Receive Date: 20121024
  Receipt Date: 20121024
  Transmission Date: 20130627
  Serious: Yes (Hospitalization)
  Sender: FDA-Public Use
  Company Number: FR-ASTRAZENECA-2012SE79407

PATIENT
  Age: 42 Year
  Sex: Male

DRUGS (2)
  1. XEROQUEL [Suspect]
     Indication: ANXIETY DISORDER
     Route: 048
     Dates: start: 201209
  2. VALIUM [Concomitant]
     Route: 048

REACTIONS (1)
  - Hepatitis acute [Not Recovered/Not Resolved]
